FAERS Safety Report 8830783 (Version 2)
Quarter: 2013Q2

REPORT INFORMATION
  Report Type: Spontaneous
  Country: US (occurrence: US)
  Receive Date: 20121009
  Receipt Date: 20130408
  Transmission Date: 20140414
  Serious: No
  Sender: FDA-Public Use
  Company Number: US-009507513-1210USA003348

PATIENT
  Sex: Female
  Weight: 70.75 kg

DRUGS (7)
  1. MIRALAX [Suspect]
     Indication: SURGERY
     Dosage: UNK, UNKNOWN
     Route: 048
     Dates: start: 20121003
  2. MIRALAX [Suspect]
     Indication: MEDICAL OBSERVATION
     Dosage: UNK, UNKNOWN
     Route: 048
     Dates: start: 20120901, end: 20120907
  3. METFORMIN [Concomitant]
     Indication: DIABETES MELLITUS
     Dosage: UNK, UNKNOWN
  4. LISINOPRIL [Concomitant]
     Indication: HYPERTENSION
     Dosage: UNK, UNKNOWN
  5. METOPROLOL [Concomitant]
     Indication: HYPERTENSION
     Dosage: UNK, UNKNOWN
  6. CRESTOR [Concomitant]
     Indication: HYPERTENSION
     Dosage: UNK, UNKNOWN
  7. WARFARIN [Concomitant]
     Indication: CARDIAC DISORDER
     Dosage: UNK, UNKNOWN

REACTIONS (1)
  - International normalised ratio decreased [Recovered/Resolved]
